FAERS Safety Report 5252326-X (Version None)
Quarter: 2007Q1

REPORT INFORMATION
  Report Type: 
  Country: None (occurrence: None)
  Receive Date: 20070301
  Receipt Date: 20060629
  Transmission Date: 20070707
  Serious: Yes (Hospitalization)
  Sender: FDA-Public Use
  Company Number: US-BRISTOL-MYERS SQUIBB COMPANY-13361571

PATIENT
  Age: 81 Year
  Sex: Female
  Weight: 59 kg

DRUGS (7)
  1. TAXOL [Suspect]
     Indication: BREAST CANCER
     Route: 042
     Dates: start: 20060322
  2. CARBOPLATIN [Concomitant]
  3. HERCEPTIN [Concomitant]
  4. DECADRON [Concomitant]
  5. ATENOLOL [Concomitant]
  6. DYAZIDE [Concomitant]
  7. NEXIUM [Concomitant]

REACTIONS (3)
  - ARTHRALGIA [None]
  - ATRIOVENTRICULAR BLOCK COMPLETE [None]
  - MYALGIA [None]
